FAERS Safety Report 26102272 (Version 1)
Quarter: 2025Q4

REPORT INFORMATION
  Report Type: Spontaneous
  Country: CN (occurrence: CN)
  Receive Date: 20251128
  Receipt Date: 20251128
  Transmission Date: 20260118
  Serious: Yes (Other)
  Sender: JOHNSON AND JOHNSON
  Company Number: CN-JNJFOC-20251164706

PATIENT
  Age: 62 Year
  Sex: Female
  Weight: 60 kg

DRUGS (1)
  1. DARZALEX [Suspect]
     Active Substance: DARATUMUMAB
     Indication: Plasma cell myeloma
     Dosage: (INITIAL RATE 50 ML/H, INCREASED BY 50 ML EVERY HOUR, MAXIMUM RATE 200 ML/H)
     Route: 041
     Dates: start: 20251031, end: 20251031

REACTIONS (6)
  - Tachypnoea [Recovered/Resolved]
  - Gingival pain [Recovered/Resolved]
  - Oral pain [Recovered/Resolved]
  - Conjunctival oedema [Recovered/Resolved]
  - Chest discomfort [Recovered/Resolved]
  - Infusion related reaction [Recovered/Resolved]

NARRATIVE: CASE EVENT DATE: 20251031
